FAERS Safety Report 15478223 (Version 1)
Quarter: 2018Q4

REPORT INFORMATION
  Report Type: Spontaneous
  Country: GB (occurrence: GB)
  Receive Date: 20181009
  Receipt Date: 20181009
  Transmission Date: 20190205
  Serious: Yes (Other)
  Sender: FDA-Public Use
  Company Number: GB-MYLANLABS-2018M1072619

PATIENT
  Age: 53 Year
  Sex: Male

DRUGS (4)
  1. RIFATER [Suspect]
     Active Substance: ISONIAZID\PYRAZINAMIDE\RIFAMPIN
     Indication: EXPOSURE TO COMMUNICABLE DISEASE
     Dosage: UNK
     Route: 065
  2. ETHAMBUTOL [Suspect]
     Active Substance: ETHAMBUTOL HYDROCHLORIDE
     Indication: EXPOSURE TO COMMUNICABLE DISEASE
     Dosage: 1300 MG, UNK
     Route: 065
  3. PYRIDOXINE [Suspect]
     Active Substance: PYRIDOXINE
     Indication: EXPOSURE TO COMMUNICABLE DISEASE
     Dosage: 10 MG, UNK
     Route: 065
  4. RIFAMPICIN [Suspect]
     Active Substance: RIFAMPIN
     Indication: EXPOSURE TO COMMUNICABLE DISEASE
     Dosage: 300 MG
     Route: 065

REACTIONS (3)
  - Hepatotoxicity [Recovered/Resolved]
  - Red man syndrome [Recovered/Resolved]
  - Hypersensitivity [Recovered/Resolved]
